FAERS Safety Report 22268235 (Version 1)
Quarter: 2023Q2

REPORT INFORMATION
  Report Type: Spontaneous
  Country: JP (occurrence: JP)
  Receive Date: 20230430
  Receipt Date: 20230430
  Transmission Date: 20230722
  Serious: Yes (Hospitalization, Other)
  Sender: FDA-Public Use
  Company Number: JP-BRISTOL-MYERS SQUIBB COMPANY-2023-051300

PATIENT
  Age: 70 Year
  Sex: Male

DRUGS (3)
  1. REVLIMID [Suspect]
     Active Substance: LENALIDOMIDE
     Indication: Plasma cell myeloma
     Dosage: 5MG 2CP ONCE DAILY AFTER BREAKFAST
     Route: 048
     Dates: start: 20230114, end: 20230118
  2. REVLIMID [Suspect]
     Active Substance: LENALIDOMIDE
     Dosage: 5MG 2CP ONCE DAILY AFTER BREAKFAST
     Route: 048
     Dates: start: 20230323, end: 20230405
  3. REVLIMID [Suspect]
     Active Substance: LENALIDOMIDE
     Route: 048

REACTIONS (4)
  - Bone disorder [Unknown]
  - Product prescribing issue [Unknown]
  - Condition aggravated [Unknown]
  - Plasma cell myeloma [Unknown]
